FAERS Safety Report 4942110-6 (Version None)
Quarter: 2006Q1

REPORT INFORMATION
  Report Type: 
  Country: None (occurrence: None)
  Receive Date: 20060313
  Receipt Date: 20050623
  Transmission Date: 20060701
  Serious: No
  Sender: FDA-Public Use
  Company Number: US-GLAXOSMITHKLINE-A0563987A

PATIENT
  Age: 46 Year

DRUGS (1)
  1. NICORETTE (MINT) [Suspect]
     Indication: DRUG WITHDRAWAL MAINTENANCE THERAPY

REACTIONS (2)
  - BURNING SENSATION MUCOSAL [None]
  - DRUG ABUSER [None]
